FAERS Safety Report 8268396-0 (Version None)
Quarter: 2012Q1

REPORT INFORMATION
  Report Type: 
  Country: None (occurrence: None)
  Receive Date: 20120327
  Receipt Date: 20090908
  Transmission Date: 20120608
  Serious: Yes (Other)
  Sender: FDA-Public Use
  Company Number: PHEH2009US04269

PATIENT
  Age: 78 Year
  Sex: Female

DRUGS (3)
  1. GLEEVEC [Suspect]
     Indication: CHRONIC MYELOID LEUKAEMIA
     Dosage: 400 MG
     Dates: start: 20081001
  2. GLEEVEC [Suspect]
     Indication: CHROMOSOME ANALYSIS ABNORMAL
     Dosage: 400 MG
     Dates: start: 20081001
  3. PROCHLORPERAZINE MALEATE [Suspect]
     Dosage: 10 MG, QOD

REACTIONS (10)
  - OEDEMA PERIPHERAL [None]
  - MUSCLE SPASMS [None]
  - OSTEOARTHRITIS [None]
  - DIARRHOEA [None]
  - VOMITING [None]
  - PAIN IN EXTREMITY [None]
  - NEUROPATHY PERIPHERAL [None]
  - ABDOMINAL DISTENSION [None]
  - NAUSEA [None]
  - MUSCULOSKELETAL DISCOMFORT [None]
